FAERS Safety Report 16287802 (Version 2)
Quarter: 2019Q4

REPORT INFORMATION
  Report Type: Report from Study
  Country: IT (occurrence: IT)
  Receive Date: 20190508
  Receipt Date: 20191015
  Transmission Date: 20200122
  Serious: Yes (Other)
  Sender: FDA-Public Use
  Company Number: IT-ROCHE-2311074

PATIENT
  Age: 57 Year
  Sex: Female
  Weight: 60 kg

DRUGS (10)
  1. TAXOTERE [Suspect]
     Active Substance: DOCETAXEL
     Indication: BREAST CANCER
     Dosage: MOST RECENT DOSE PRIOR TO AE ON 06/DEC/2018
     Route: 042
     Dates: start: 20180817
  2. CLORFENAMINA [CHLORPHENAMINE] [Concomitant]
     Dosage: ONGOING = CHECKED
     Route: 065
     Dates: start: 20180816
  3. ARIMIDEX [Suspect]
     Active Substance: ANASTROZOLE
     Indication: BREAST CANCER
     Route: 048
     Dates: start: 20190115
  4. PARACETAMOLO [Concomitant]
     Active Substance: ACETAMINOPHEN
     Dosage: ONGOING = CHECKED
     Route: 065
     Dates: start: 20180816
  5. TRASTUZUMAB. [Suspect]
     Active Substance: TRASTUZUMAB
     Indication: BREAST CANCER
     Dosage: MOST RECENT DOSE PRIOR TO THE EVENT: 13/SEP/2018
     Route: 041
     Dates: start: 20180817, end: 20180817
  6. ONDANSETRON [Concomitant]
     Active Substance: ONDANSETRON
     Dosage: ONGOING = CHECKED
     Route: 065
     Dates: start: 20180817
  7. ZOFRAN [Concomitant]
     Active Substance: ONDANSETRON HYDROCHLORIDE
     Dosage: ONGOING = CHECKED
     Route: 065
     Dates: start: 20180913
  8. PERTUZUMAB. [Suspect]
     Active Substance: PERTUZUMAB
     Indication: BREAST CANCER
     Dosage: MOST RECENT DOSE PRIOR TO THE EVENT: 13/SEP/2018
     Route: 042
     Dates: start: 20180816, end: 20180816
  9. DESAMETASONE [Concomitant]
     Active Substance: DEXAMETHASONE
     Dosage: ONGOING = CHECKED
     Route: 065
     Dates: start: 20180816
  10. DESAMETASONE [Concomitant]
     Active Substance: DEXAMETHASONE
     Dosage: ONGOING = CHECKED
     Route: 065
     Dates: start: 20180913

REACTIONS (1)
  - Ventricular hypokinesia [Recovered/Resolved]

NARRATIVE: CASE EVENT DATE: 20190423
